FAERS Safety Report 6332176-3 (Version None)
Quarter: 2009Q3

REPORT INFORMATION
  Report Type: 
  Country: None (occurrence: None)
  Receive Date: 20090828
  Receipt Date: 20090820
  Transmission Date: 20100115
  Serious: Yes (Other)
  Sender: FDA-Public Use
  Company Number: US-CELGENEUS-163-21880-09081670

PATIENT
  Sex: Female

DRUGS (1)
  1. REVLIMID [Suspect]
     Indication: MULTIPLE MYELOMA
     Route: 048
     Dates: start: 20071001, end: 20090819

REACTIONS (4)
  - BLOOD COUNT ABNORMAL [None]
  - BREAST CANCER FEMALE [None]
  - DISEASE PROGRESSION [None]
  - NEUTROPENIA [None]
